FAERS Safety Report 25179437 (Version 1)
Quarter: 2025Q2

REPORT INFORMATION
  Report Type: Spontaneous
  Country: CA (occurrence: CA)
  Receive Date: 20250409
  Receipt Date: 20250409
  Transmission Date: 20250717
  Serious: Yes (Death, Hospitalization, Other)
  Sender: AZURITY PHARMACEUTICALS
  Company Number: CA-AZURITY PHARMACEUTICALS, INC.-AZR202503-000968

PATIENT
  Age: 65 Year
  Sex: Female

DRUGS (2)
  1. METHOTREXATE [Suspect]
     Active Substance: METHOTREXATE
     Indication: Psoriasis
     Dosage: 12.5 MILLIGRAM, WEEKLY
     Route: 048
  2. METHOTREXATE [Suspect]
     Active Substance: METHOTREXATE
     Dosage: UNK, DAILY
     Route: 065

REACTIONS (6)
  - Cardiovascular disorder [Fatal]
  - Haemodynamic instability [Unknown]
  - Sepsis [Fatal]
  - Epidermal necrosis [Fatal]
  - Renal impairment [Unknown]
  - Inappropriate schedule of product administration [Unknown]
